FAERS Safety Report 16200352 (Version 1)
Quarter: 2019Q2

REPORT INFORMATION
  Report Type: Other
  Country: RU (occurrence: RU)
  Receive Date: 20190416
  Receipt Date: 20190416
  Transmission Date: 20190711
  Serious: No
  Sender: FDA-Public Use
  Company Number: RU-LUPIN PHARMACEUTICALS INC.-2018-03677

PATIENT
  Age: 18 Year
  Sex: Female
  Weight: 60 kg

DRUGS (4)
  1. ISONIAZID. [Concomitant]
     Active Substance: ISONIAZID
     Indication: PULMONARY TUBERCULOSIS
     Dosage: UNK
     Route: 048
     Dates: start: 20120123, end: 20120213
  2. COMBUTOL [Concomitant]
     Active Substance: ETHAMBUTOL HYDROCHLORIDE
     Indication: PULMONARY TUBERCULOSIS
     Dosage: UNK
     Route: 048
     Dates: start: 20120123
  3. PYZINA [Suspect]
     Active Substance: PYRAZINAMIDE
     Indication: PULMONARY TUBERCULOSIS
     Dosage: 1.5 G, QD
     Route: 048
     Dates: start: 20120123, end: 20120213
  4. R-CIN [Suspect]
     Active Substance: RIFAMPIN
     Indication: PULMONARY TUBERCULOSIS
     Dosage: 0.6 G, QD
     Route: 048
     Dates: start: 20120123, end: 20120213

REACTIONS (2)
  - Rash [Recovered/Resolved]
  - Pruritus [Recovered/Resolved]

NARRATIVE: CASE EVENT DATE: 20120213
